FAERS Safety Report 11718779 (Version 3)
Quarter: 2015Q4

REPORT INFORMATION
  Report Type: Report from Study
  Country: CO (occurrence: CO)
  Receive Date: 20151109
  Receipt Date: 20151224
  Transmission Date: 20160304
  Serious: Yes (Hospitalization)
  Sender: FDA-Public Use
  Company Number: PHHY2015CO145340

PATIENT
  Sex: Female
  Weight: 31 kg

DRUGS (6)
  1. CALBONE//CALCIUM CITRATE [Concomitant]
     Indication: PRODUCT USED FOR UNKNOWN INDICATION
     Dosage: 1 OT, Q8H
     Route: 065
  2. FOLIC ACID. [Concomitant]
     Active Substance: FOLIC ACID
     Indication: PRODUCT USED FOR UNKNOWN INDICATION
     Route: 065
  3. EXJADE [Suspect]
     Active Substance: DEFERASIROX
     Indication: SICKLE CELL ANAEMIA
     Dosage: 1 DF OF 500 MG, QD
     Route: 048
     Dates: start: 20141017
  4. HIDROXIUREA [Concomitant]
     Active Substance: HYDROXYUREA
     Indication: PRODUCT USED FOR UNKNOWN INDICATION
     Dosage: 500 MG, UNK
     Route: 065
  5. EXJADE [Suspect]
     Active Substance: DEFERASIROX
     Indication: THALASSAEMIA BETA
     Dosage: 2 DF OF 500 MG, QD (DAILY (MONDAY, WEDNESDAY, FRIDAY, SATURDAY, SUNDAY)
     Route: 065
  6. EXJADE [Suspect]
     Active Substance: DEFERASIROX
     Dosage: 3 DF, QD (DAILY BEOFRE BREAKFAST, TUESDAY, THURSDAY)
     Route: 065

REACTIONS (9)
  - Dengue fever [Recovered/Resolved]
  - Pyrexia [Unknown]
  - Localised intraabdominal fluid collection [Unknown]
  - Hypersensitivity [Unknown]
  - Oedematous kidney [Unknown]
  - Pruritus [Unknown]
  - Spleen disorder [Unknown]
  - Headache [Unknown]
  - Abdominal pain upper [Unknown]
